FAERS Safety Report 7360160-X (Version None)
Quarter: 2011Q1

REPORT INFORMATION
  Report Type: 
  Country: None (occurrence: None)
  Receive Date: 20110318
  Receipt Date: 20110314
  Transmission Date: 20110831
  Serious: No
  Sender: FDA-Public Use
  Company Number: US-PFIZER INC-2011019286

PATIENT
  Sex: Male

DRUGS (5)
  1. VIAGRA [Suspect]
     Indication: ERECTILE DYSFUNCTION
     Dosage: 100 MG, AS NEEDED
     Route: 048
     Dates: start: 20110127
  2. VIAGRA [Suspect]
     Dosage: UNK
     Route: 048
     Dates: start: 20110127, end: 20110128
  3. MONTELUKAST [Concomitant]
     Indication: ASTHMA
     Dosage: UNK
     Dates: start: 20100901
  4. PROAIR HFA [Concomitant]
     Dosage: UNK
     Dates: start: 20110224
  5. PANTOPRAZOLE [Concomitant]
     Indication: GASTROOESOPHAGEAL REFLUX DISEASE
     Dosage: UNK
     Dates: start: 20101005

REACTIONS (3)
  - DIZZINESS [None]
  - DRUG INEFFECTIVE [None]
  - FLUSHING [None]
